FAERS Safety Report 10255880 (Version 2)
Quarter: 2014Q2

REPORT INFORMATION
  Report Type: Spontaneous
  Country: US (occurrence: US)
  Receive Date: 20140624
  Receipt Date: 20140624
  Transmission Date: 20141212
  Serious: Yes (Death, Hospitalization)
  Sender: FDA-Public Use
  Company Number: US-GLAXOSMITHKLINE-A0871741A

PATIENT
  Age: 52 Year
  Sex: Female
  Weight: 74.1 kg

DRUGS (1)
  1. AVANDIA [Suspect]
     Indication: DIABETES MELLITUS
     Dosage: 8MG PER DAY
     Route: 048

REACTIONS (5)
  - Pulmonary embolism [Fatal]
  - Myocardial infarction [Unknown]
  - Deep vein thrombosis [Fatal]
  - Cerebrovascular accident [Unknown]
  - Hemiparesis [Unknown]
